FAERS Safety Report 19468164 (Version 1)
Quarter: 2021Q2

REPORT INFORMATION
  Report Type: Spontaneous
  Country: US (occurrence: US)
  Receive Date: 20210628
  Receipt Date: 20210628
  Transmission Date: 20210717
  Serious: No
  Sender: FDA-Public Use
  Company Number: US-JNJFOC-20210638147

PATIENT

DRUGS (1)
  1. MENS ROGAINE EXTRA STRENGTH [Suspect]
     Active Substance: MINOXIDIL
     Indication: ALOPECIA
     Dosage: 1/2 CAPFUL AS DIRECTED 1?2 X PER DAY
     Route: 065
     Dates: start: 202103

REACTIONS (3)
  - Inappropriate schedule of product administration [Unknown]
  - Hair texture abnormal [Unknown]
  - Underdose [Unknown]

NARRATIVE: CASE EVENT DATE: 2021
